FAERS Safety Report 25002981 (Version 1)
Quarter: 2025Q1

REPORT INFORMATION
  Report Type: Spontaneous
  Country: US (occurrence: US)
  Receive Date: 20250224
  Receipt Date: 20250224
  Transmission Date: 20250409
  Serious: No
  Sender: LEO PHARM
  Company Number: US-LEO Pharma-377796

PATIENT
  Age: 53 Year
  Sex: Female

DRUGS (1)
  1. ADBRY [Suspect]
     Active Substance: TRALOKINUMAB-LDRM
     Indication: Idiopathic urticaria
     Dosage: TREATMENT IS ONGOING
     Dates: start: 202312

REACTIONS (2)
  - Urticaria [Unknown]
  - Product use in unapproved indication [Unknown]
